FAERS Safety Report 9719968 (Version 4)
Quarter: 2014Q1

REPORT INFORMATION
  Report Type: Report from Study
  Country: US (occurrence: US)
  Receive Date: 20131128
  Receipt Date: 20140131
  Transmission Date: 20141002
  Serious: Yes (Death, Life-Threatening, Hospitalization, Other)
  Sender: FDA-Public Use
  Company Number: US-JNJFOC-20131101392

PATIENT
  Age: 74 Year
  Sex: Male
  Weight: 98.43 kg

DRUGS (6)
  1. IBRUTINIB [Suspect]
     Route: 048
  2. IBRUTINIB [Suspect]
     Indication: MANTLE CELL LYMPHOMA
     Route: 048
     Dates: start: 20131028, end: 20131101
  3. ACYCLOVIR [Concomitant]
  4. TRIMETHOPRIM AND SULFAMETHOXAZOLE [Concomitant]
  5. HYDROXYUREA [Concomitant]
  6. IPRATROPIUM  BROMIDE [Concomitant]
     Route: 045

REACTIONS (4)
  - Cardio-respiratory arrest [Fatal]
  - Leukocytosis [Not Recovered/Not Resolved]
  - Hypophosphataemia [Recovered/Resolved]
  - Hyperkalaemia [Recovered/Resolved]
